FAERS Safety Report 6771185-7 (Version None)
Quarter: 2010Q2

REPORT INFORMATION
  Report Type: 
  Country: None (occurrence: None)
  Receive Date: 20100616
  Receipt Date: 20100604
  Transmission Date: 20101027
  Serious: Yes (Other)
  Sender: FDA-Public Use
  Company Number: US-WYE-H15514610

PATIENT
  Age: 59 Year
  Sex: Male
  Weight: 108.96 kg

DRUGS (1)
  1. PRISTIQ [Suspect]
     Indication: PAIN
     Route: 048
     Dates: start: 20081201

REACTIONS (3)
  - BLOOD TESTOSTERONE DECREASED [None]
  - HERNIA [None]
  - LIBIDO DECREASED [None]
